FAERS Safety Report 20871773 (Version 1)
Quarter: 2022Q2

REPORT INFORMATION
  Report Type: Spontaneous
  Country: US (occurrence: US)
  Receive Date: 20220525
  Receipt Date: 20220525
  Transmission Date: 20220721
  Serious: No
  Sender: FDA-Public Use
  Company Number: US-BAUSCH-BL-2022-012571

PATIENT
  Age: 57 Year
  Sex: Female
  Weight: 68.100 kg

DRUGS (2)
  1. BACITRACIN ZINC AND POLYMYXIN B SULFATE [Suspect]
     Active Substance: BACITRACIN ZINC\POLYMYXIN B SULFATE
     Indication: Eyelid disorder
     Dosage: 1 APPLICATION TO THE RIGHT TWICE DAILY
     Route: 047
     Dates: start: 20220512, end: 20220515
  2. BACITRACIN ZINC AND POLYMYXIN B SULFATE [Suspect]
     Active Substance: BACITRACIN ZINC\POLYMYXIN B SULFATE
     Dosage: EVERY NIGHT
     Route: 047

REACTIONS (5)
  - Application site erythema [Recovering/Resolving]
  - Swelling of eyelid [Recovering/Resolving]
  - Application site pain [Not Recovered/Not Resolved]
  - Periorbital swelling [Recovering/Resolving]
  - Product use in unapproved indication [Unknown]

NARRATIVE: CASE EVENT DATE: 20220501
